FAERS Safety Report 7659702-6 (Version None)
Quarter: 2011Q3

REPORT INFORMATION
  Report Type: 
  Country: None (occurrence: None)
  Receive Date: 20110802
  Receipt Date: 20110726
  Transmission Date: 20111222
  Serious: Yes (Death)
  Sender: FDA-Public Use
  Company Number: DSA_47262_2011

PATIENT
  Sex: Female
  Weight: 54.4 kg

DRUGS (8)
  1. DIOVAN [Concomitant]
  2. XENAZINE [Suspect]
     Indication: TOURETTE'S DISORDER
     Dosage: (50 MG TID ORAL)
     Route: 048
     Dates: start: 20100430, end: 20110724
  3. SINEMET [Concomitant]
  4. COLACE [Concomitant]
  5. COUMADIN [Concomitant]
  6. LASIX [Concomitant]
  7. CARBOPLATIN [Concomitant]
  8. TYLENOL (CAPLET) [Concomitant]

REACTIONS (1)
  - DEATH [None]
